FAERS Safety Report 10930480 (Version 5)
Quarter: 2015Q2

REPORT INFORMATION
  Report Type: Spontaneous
  Country: HU (occurrence: HU)
  Receive Date: 20150319
  Receipt Date: 20150408
  Transmission Date: 20150821
  Serious: Yes (Death, Congenital Anomaly)
  Sender: FDA-Public Use
  Company Number: HU-ABBVIE-15K-076-1362452-00

PATIENT
  Age: 43 Year
  Sex: Male
  Weight: 61 kg

DRUGS (3)
  1. SALOFALK [Concomitant]
     Active Substance: MESALAMINE
     Indication: CROHN^S DISEASE
  2. HUMIRA [Suspect]
     Active Substance: ADALIMUMAB
     Indication: CROHN^S DISEASE
     Route: 058
     Dates: start: 20141222, end: 20150120
  3. IMURAN [Suspect]
     Active Substance: AZATHIOPRINE
     Indication: CROHN^S DISEASE
     Route: 048
     Dates: start: 200805

REACTIONS (11)
  - Blood lactate dehydrogenase abnormal [Unknown]
  - Interstitial lung disease [Fatal]
  - Brain herniation [Fatal]
  - Heart rate increased [Unknown]
  - Fibrin D dimer decreased [Unknown]
  - Atypical pneumonia [Fatal]
  - Brain oedema [Fatal]
  - Visceral congestion [Fatal]
  - Aortic arteriosclerosis [Fatal]
  - Pallor [Unknown]
  - Crohn^s disease [Fatal]

NARRATIVE: CASE EVENT DATE: 20150220
